FAERS Safety Report 20659873 (Version 1)
Quarter: 2022Q1

REPORT INFORMATION
  Report Type: Report from Study
  Country: MX (occurrence: MX)
  Receive Date: 20220331
  Receipt Date: 20220331
  Transmission Date: 20220423
  Serious: Yes (Other)
  Sender: FDA-Public Use
  Company Number: MX-UCBSA-2022018500

PATIENT
  Age: 63 Year
  Sex: Female
  Weight: 87 kg

DRUGS (10)
  1. ROTIGOTINE [Suspect]
     Active Substance: ROTIGOTINE
     Indication: Parkinson^s disease
     Dosage: 4 MILLIGRAM, ONCE DAILY (QD)
     Route: 062
     Dates: start: 202203
  2. HYDROCHLOROTHIAZIDE [Suspect]
     Active Substance: HYDROCHLOROTHIAZIDE
     Indication: Blood pressure measurement
     Dosage: 1 DOSAGE FORM, 2X/DAY (BID)
     Route: 048
     Dates: start: 202203, end: 20220318
  3. LEVODOPA [Concomitant]
     Active Substance: LEVODOPA
     Indication: Tremor
  4. LEVODOPA [Concomitant]
     Active Substance: LEVODOPA
     Indication: Musculoskeletal stiffness
  5. BIPERIDEN [Concomitant]
     Active Substance: BIPERIDEN
     Indication: Parkinson^s disease
  6. TELMISARTAN [Concomitant]
     Active Substance: TELMISARTAN
     Indication: Hypertension
  7. MAGNESIUM [Concomitant]
     Active Substance: MAGNESIUM
     Indication: Musculoskeletal stiffness
  8. POMEGRANATE [PUNICA GRANATUM FRUIT;PUNICA GRANATUM SEED OIL] [Concomitant]
     Indication: Parkinson^s disease
  9. POMEGRANATE [PUNICA GRANATUM FRUIT;PUNICA GRANATUM SEED OIL] [Concomitant]
     Indication: Memory impairment
  10. REUMOFLEX [Concomitant]
     Indication: Ankylosing spondylitis

REACTIONS (11)
  - Blood pressure fluctuation [Recovered/Resolved]
  - Joint swelling [Recovered/Resolved]
  - Paraesthesia [Recovered/Resolved]
  - Hypoaesthesia [Recovered/Resolved]
  - Visual impairment [Unknown]
  - Arthralgia [Unknown]
  - Pain in extremity [Unknown]
  - Application site pain [Unknown]
  - Vomiting [Unknown]
  - Discomfort [Unknown]
  - Arthropathy [Unknown]

NARRATIVE: CASE EVENT DATE: 20220301
